FAERS Safety Report 24791920 (Version 1)
Quarter: 2024Q4

REPORT INFORMATION
  Report Type: Spontaneous
  Country: US (occurrence: US)
  Receive Date: 20241231
  Receipt Date: 20241231
  Transmission Date: 20250115
  Serious: Yes (Other)
  Sender: AMGEN
  Company Number: US-AMGEN-USASP2024253916

PATIENT

DRUGS (1)
  1. TEPROTUMUMAB [Suspect]
     Active Substance: TEPROTUMUMAB
     Indication: Endocrine ophthalmopathy
     Dosage: UNK
     Route: 065

REACTIONS (10)
  - Exophthalmos [Unknown]
  - Urticaria [Unknown]
  - Diplopia [Unknown]
  - Hyperglycaemia [Unknown]
  - Dysgeusia [Unknown]
  - Fatigue [Unknown]
  - Alopecia [Unknown]
  - Glycosylated haemoglobin increased [Unknown]
  - Nausea [Unknown]
  - Diarrhoea [Unknown]
